FAERS Safety Report 9828671 (Version 1)
Quarter: 2013Q4

REPORT INFORMATION
  Report Type: Spontaneous
  Country: US (occurrence: None)
  Receive Date: 20131120
  Receipt Date: 20131120
  Transmission Date: 20140711
  Serious: No
  Sender: FDA-Public Use
  Company Number: 1000048730

PATIENT
  Age: 31 Year
  Sex: Male

DRUGS (2)
  1. VIIBRYD [Suspect]
     Indication: ANXIETY
     Route: 048
  2. VIIBRYD [Suspect]
     Indication: ANXIETY
     Route: 048
     Dates: end: 201309

REACTIONS (3)
  - Anxiety [None]
  - Agitation [None]
  - Off label use [None]
